FAERS Safety Report 6302042-8 (Version None)
Quarter: 2009Q3

REPORT INFORMATION
  Report Type: 
  Country: None (occurrence: None)
  Receive Date: 20090807
  Receipt Date: 20090731
  Transmission Date: 20100115
  Serious: Yes (Other)
  Sender: FDA-Public Use
  Company Number: CA-PURDUE-CAN-2009-0001069

PATIENT
  Age: 59 Year
  Sex: Female

DRUGS (7)
  1. DILAUDID [Suspect]
     Indication: PAIN
     Dosage: 1-2 TABLET, Q6H PRN
     Route: 048
     Dates: start: 20080110
  2. DILAUDID [Suspect]
     Dosage: 1-2 TABLET, Q6H PRN
     Route: 048
     Dates: start: 20080110
  3. HYDROMORPHONE HCL [Suspect]
     Indication: PAIN
     Dosage: 18 MG, HS
     Route: 048
     Dates: start: 20090303
  4. SENNOSIDES [Concomitant]
     Indication: DRUG USE FOR UNKNOWN INDICATION
     Dosage: 1-2 TABLET, PRN
     Route: 048
     Dates: start: 20080201
  5. CITALOPRAM HYDROBROMIDE [Concomitant]
     Indication: DRUG USE FOR UNKNOWN INDICATION
     Dosage: 40 MG, DAILY
     Route: 048
     Dates: start: 20070801
  6. DOCUSATE [Concomitant]
     Indication: DRUG USE FOR UNKNOWN INDICATION
     Dosage: 1-3 CAPSL, DAILY
     Route: 048
     Dates: start: 20080201
  7. COLCHICINE [Concomitant]
     Indication: DRUG USE FOR UNKNOWN INDICATION
     Dosage: UNK
     Route: 048
     Dates: start: 20090601

REACTIONS (3)
  - ANXIETY [None]
  - DRUG INEFFECTIVE [None]
  - SUICIDAL IDEATION [None]
